FAERS Safety Report 11405236 (Version 1)
Quarter: 2015Q3

REPORT INFORMATION
  Report Type: Spontaneous
  Country: IT (occurrence: FR)
  Receive Date: 20150821
  Receipt Date: 20150821
  Transmission Date: 20151125
  Serious: Yes (Hospitalization)
  Sender: FDA-Public Use
  Company Number: FR-FRI-1000079006

PATIENT
  Age: 63 Year
  Sex: Male

DRUGS (3)
  1. MONUROL [Suspect]
     Active Substance: FOSFOMYCIN TROMETHAMINE
     Indication: BLADDER CATHETERISATION
     Dosage: 1 DF
     Route: 048
     Dates: start: 20150628, end: 20150628
  2. SILODYX [Suspect]
     Active Substance: SILODOSIN
     Dosage: 1 DF
     Route: 048
     Dates: start: 20150630, end: 20150707
  3. MABTHERA [Suspect]
     Active Substance: RITUXIMAB
     Indication: ACUTE LYMPHOCYTIC LEUKAEMIA (IN REMISSION)
     Dosage: CYCLIC, 4 CONSOLIDATION CURES
     Route: 042
     Dates: start: 20150105, end: 20150420

REACTIONS (2)
  - Agranulocytosis [Recovered/Resolved]
  - Product use issue [Recovered/Resolved]

NARRATIVE: CASE EVENT DATE: 20150628
